FAERS Safety Report 6418717-6 (Version None)
Quarter: 2009Q4

REPORT INFORMATION
  Report Type: 
  Country: None (occurrence: None)
  Receive Date: 20091026
  Receipt Date: 20091009
  Transmission Date: 20100525
  Serious: Yes (Disabling)
  Sender: FDA-Public Use
  Company Number: 1-20371536

PATIENT
  Age: 62 Year
  Sex: Female
  Weight: 47.6277 kg

DRUGS (10)
  1. CLOBETASOL PROPIONATE [Suspect]
     Indication: VULVOVAGINAL DRYNESS
     Dosage: ONCE DAILY, AS DIRECTED, VAGINAL
     Route: 067
     Dates: start: 20090904
  2. TOPIRAMATE [Concomitant]
  3. NORTRIPTYLINE [Concomitant]
  4. VITAMIN D [Concomitant]
  5. CITRACAL (CALCIUM CITRATE) WITH D [Concomitant]
  6. PENTASA [Concomitant]
  7. PROBIOTIC [Concomitant]
  8. TRANSFORMATION DIGEST [Concomitant]
  9. GERI-FREEDA MULTIVITAMIN [Concomitant]
  10. VAGIMEN (ESTRADIOL VAGINAL TABLETS) [Concomitant]

REACTIONS (8)
  - EAR DISCOMFORT [None]
  - EYE IRRITATION [None]
  - LOW DENSITY LIPOPROTEIN INCREASED [None]
  - MUSCLE TWITCHING [None]
  - NASOPHARYNGITIS [None]
  - NO THERAPEUTIC RESPONSE [None]
  - VISUAL ACUITY REDUCED [None]
  - VITAMIN B12 DECREASED [None]
